FAERS Safety Report 9681558 (Version 1)
Quarter: 2013Q4

REPORT INFORMATION
  Report Type: Spontaneous
  Country: US (occurrence: US)
  Receive Date: 20131111
  Receipt Date: 20131111
  Transmission Date: 20140711
  Serious: No
  Sender: FDA-Public Use
  Company Number: US-ENDO PHARMACEUTICALS INC.-CLON20130004

PATIENT
  Sex: Female
  Weight: 80.81 kg

DRUGS (6)
  1. CLONIDINE HCL TABLETS [Suspect]
     Indication: HYPERTENSION
     Route: 048
     Dates: start: 20130102, end: 201302
  2. CLONIDINE HCL TABLETS [Suspect]
     Route: 048
     Dates: start: 201302
  3. ALPRAZOLAM [Suspect]
     Indication: ANXIETY
     Dosage: 0.5 MG
  4. OMEPRAZOLE [Concomitant]
     Indication: GASTROOESOPHAGEAL REFLUX DISEASE
     Dosage: UNK
     Route: 048
  5. CIMETIDINE [Concomitant]
     Indication: DYSPEPSIA
     Dosage: UNK
     Route: 048
  6. PROZAC [Concomitant]
     Indication: DEPRESSION
     Dosage: UNK
     Route: 048

REACTIONS (2)
  - Blood pressure decreased [Not Recovered/Not Resolved]
  - Drug interaction [Not Recovered/Not Resolved]
